FAERS Safety Report 7769589-9 (Version None)
Quarter: 2011Q3

REPORT INFORMATION
  Report Type: 
  Country: None (occurrence: None)
  Receive Date: 20110922
  Receipt Date: 20101227
  Transmission Date: 20111222
  Serious: No
  Sender: FDA-Public Use
  Company Number: US-ASTRAZENECA-2010SE40776

PATIENT
  Age: 49 Year
  Sex: Male
  Weight: 131.5 kg

DRUGS (2)
  1. SEROQUEL [Suspect]
     Indication: DEPRESSION
     Route: 048
     Dates: start: 20070101, end: 20101223
  2. SEROQUEL [Suspect]
     Indication: AFFECTIVE DISORDER
     Route: 048
     Dates: start: 20070101, end: 20101223

REACTIONS (3)
  - POOR QUALITY SLEEP [None]
  - DRUG DOSE OMISSION [None]
  - FEELING ABNORMAL [None]
